FAERS Safety Report 8784669 (Version 1)
Quarter: 2012Q4

REPORT INFORMATION
  Report Type: Spontaneous
  Country: US (occurrence: None)
  Receive Date: 20120907
  Receipt Date: 20120907
  Transmission Date: 20130627
  Serious: Yes (Life-Threatening, Other)
  Sender: FDA-Public Use
  Company Number: None

PATIENT
  Age: 57 Year
  Sex: Female
  Weight: 95.71 kg

DRUGS (2)
  1. BENAZEPRIL [Suspect]
     Indication: HYPERTENSION
     Route: 048
     Dates: start: 201103, end: 201204
  2. LITHIUM CARBONATE [Suspect]
     Route: 048
     Dates: start: 200805, end: 201204

REACTIONS (2)
  - Drug interaction [None]
  - Toxicity to various agents [None]
